FAERS Safety Report 5158114-7 (Version None)
Quarter: 2006Q4

REPORT INFORMATION
  Report Type: 
  Country: None (occurrence: None)
  Receive Date: 20061127
  Receipt Date: 20061117
  Transmission Date: 20070319
  Serious: Yes (Death)
  Sender: FDA-Public Use
  Company Number: US-MERCK-0611USA05745B1

PATIENT
  Sex: Male
  Weight: 3 kg

DRUGS (3)
  1. INDOCIN [Suspect]
     Indication: PREMATURE LABOUR
     Route: 064
  2. TERBUTALINE SULFATE [Concomitant]
     Route: 064
  3. MAGNESIUM SULFATE [Concomitant]
     Route: 064

REACTIONS (7)
  - BRADYCARDIA FOETAL [None]
  - DECREASED ACTIVITY [None]
  - DUCTUS ARTERIOSUS PREMATURE CLOSURE [None]
  - FOETAL DISTRESS SYNDROME [None]
  - HYDROPS FOETALIS [None]
  - PREMATURE BABY [None]
  - STILLBIRTH [None]
